FAERS Safety Report 6170715-6 (Version None)
Quarter: 2009Q2

REPORT INFORMATION
  Report Type: 
  Country: None (occurrence: None)
  Receive Date: 20090428
  Receipt Date: 20070604
  Transmission Date: 20091009
  Serious: Yes (Hospitalization)
  Sender: FDA-Public Use
  Company Number: ES-GENENTECH-243128

PATIENT
  Sex: Male

DRUGS (6)
  1. TRASTUZUMAB [Suspect]
     Indication: TRANSITIONAL CELL CARCINOMA
     Dosage: 4 MG/KG, UNK
     Route: 042
     Dates: start: 20061229, end: 20070524
  2. CISPLATIN [Suspect]
     Indication: TRANSITIONAL CELL CARCINOMA
     Dosage: 75 MG/M2, 1/MONTH
     Route: 042
     Dates: start: 20061229, end: 20070524
  3. GEMCITABINE [Suspect]
     Indication: TRANSITIONAL CELL CARCINOMA
     Dosage: 1000 G/M2, UNK
     Route: 042
     Dates: start: 20061229, end: 20070524
  4. GLICLAZIDE [Concomitant]
     Indication: DRUG USE FOR UNKNOWN INDICATION
  5. OMEPRAZOLE [Concomitant]
     Indication: DRUG USE FOR UNKNOWN INDICATION
  6. ADALAT [Concomitant]
     Indication: DRUG USE FOR UNKNOWN INDICATION

REACTIONS (1)
  - PLATELET COUNT ABNORMAL [None]
